FAERS Safety Report 6099415-8 (Version None)
Quarter: 2009Q1

REPORT INFORMATION
  Report Type: 
  Country: None (occurrence: None)
  Receive Date: 20090303
  Receipt Date: 20090227
  Transmission Date: 20090719
  Serious: Yes (Death)
  Sender: FDA-Public Use
  Company Number: JP-ASTRAZENECA-2009AP01222

PATIENT
  Age: 31387 Day
  Sex: Male
  Weight: 45 kg

DRUGS (9)
  1. DIPRIVAN [Suspect]
     Indication: SEDATION
     Dosage: 3.3-4.4 MG/KG/H
     Route: 041
     Dates: start: 20090210, end: 20090211
  2. NOVO HEPARIN [Concomitant]
     Indication: POSTOPERATIVE CARE
     Dosage: NUMBER OF SEPARATE DSAGES UNKNOWN
     Route: 041
     Dates: start: 20080210, end: 20080211
  3. NITOROL [Concomitant]
     Indication: POSTOPERATIVE CARE
     Dosage: 2 MG/H
     Route: 041
     Dates: start: 20080210, end: 20080211
  4. ASPIRIN [Concomitant]
     Dates: start: 20090209, end: 20090209
  5. PLAVIX [Concomitant]
     Dates: start: 20090209, end: 20090209
  6. ARTIST [Concomitant]
     Dates: start: 20090209, end: 20090209
  7. LASIX [Concomitant]
     Dates: start: 20090209, end: 20090209
  8. ALDACTONE [Concomitant]
     Dates: start: 20090209, end: 20090209
  9. ACECOL [Concomitant]
     Dates: start: 20090209, end: 20090209

REACTIONS (2)
  - PANCREATITIS ACUTE [None]
  - SEPSIS [None]
